FAERS Safety Report 10049135 (Version 3)
Quarter: 2014Q2

REPORT INFORMATION
  Report Type: Spontaneous
  Country: CA (occurrence: CA)
  Receive Date: 20140401
  Receipt Date: 20140527
  Transmission Date: 20141212
  Serious: Yes (Other)
  Sender: FDA-Public Use
  Company Number: CA-AMGEN-CANSP2013074118

PATIENT
  Age: 87 Year
  Sex: Female

DRUGS (6)
  1. PROLIA [Suspect]
     Indication: OSTEOPOROSIS POSTMENOPAUSAL
     Dosage: UNK
     Route: 058
     Dates: start: 201304
  2. PROTON PUMP INHIBITORS [Concomitant]
  3. MICARDIS [Concomitant]
     Indication: HYPERTENSION
     Dosage: 40 MG, QD
     Route: 048
     Dates: start: 20061106
  4. BISOPROLOL [Concomitant]
     Indication: ESSENTIAL TREMOR
     Dosage: 1.25 MG, QD
     Route: 048
  5. ADVAIR [Concomitant]
     Indication: ASTHMA
     Dosage: UNK UNK, BID, MDI
     Route: 065
  6. LOSEC                              /00661201/ [Concomitant]
     Indication: GASTROOESOPHAGEAL REFLUX DISEASE
     Dosage: 20 MG, QD
     Route: 048

REACTIONS (3)
  - Atrial flutter [Recovered/Resolved]
  - Dyspnoea [Recovered/Resolved]
  - Pruritus generalised [Recovered/Resolved]
